FAERS Safety Report 9147773 (Version 1)
Quarter: 2013Q1

REPORT INFORMATION
  Report Type: Spontaneous
  Country: FR (occurrence: FR)
  Receive Date: 20130307
  Receipt Date: 20130307
  Transmission Date: 20140127
  Serious: Yes (Hospitalization)
  Sender: FDA-Public Use
  Company Number: FR-VERTEX PHARMACEUTICALS INC.-2013-003200

PATIENT
  Age: 62 Year
  Sex: Female

DRUGS (6)
  1. INCIVO [Suspect]
     Indication: HEPATITIS C
     Dosage: 750 ?G, TID
     Route: 065
     Dates: start: 20120511, end: 201207
  2. INCIVO [Suspect]
     Indication: CHRONIC HEPATITIS C
  3. PEGASYS [Suspect]
     Indication: CHRONIC HEPATITIS C
     Dosage: DOSAGE FORM: UNSPECIFIED
     Route: 058
     Dates: start: 20120511, end: 201207
  4. RIBAVIRIN [Suspect]
     Indication: CHRONIC HEPATITIS C
     Dosage: UNK, BID
     Route: 048
     Dates: start: 20120511, end: 201207
  5. STAGID [Concomitant]
     Indication: PRODUCT USED FOR UNKNOWN INDICATION
     Dosage: DOSAGE FORM: UNSPECIFIED
     Route: 065
  6. NEORECORMON [Concomitant]
     Indication: PRODUCT USED FOR UNKNOWN INDICATION
     Dosage: DOSAGE FORM: INJECTION
     Route: 065

REACTIONS (8)
  - Rheumatoid factor increased [Unknown]
  - Neuropathy peripheral [Recovered/Resolved]
  - Ischaemia [Unknown]
  - Pyrexia [Unknown]
  - Axonal neuropathy [Unknown]
  - Prurigo [Unknown]
  - Rash maculo-papular [Recovered/Resolved]
  - Toxic skin eruption [Unknown]
